FAERS Safety Report 19738929 (Version 1)
Quarter: 2021Q3

REPORT INFORMATION
  Report Type: Spontaneous
  Country: GB (occurrence: GB)
  Receive Date: 20210824
  Receipt Date: 20210824
  Transmission Date: 20211014
  Serious: Yes (Other)
  Sender: FDA-Public Use
  Company Number: GB-PERRIGO-21GB011130

PATIENT

DRUGS (3)
  1. MIRTAZAPINE. [Concomitant]
     Active Substance: MIRTAZAPINE
     Dosage: AS DIRECTED
     Dates: start: 20210524, end: 20210808
  2. CODEINE PHOSPHATE [Concomitant]
     Active Substance: CODEINE PHOSPHATE
     Dosage: WHEN NECESSARY
     Dates: start: 20210722, end: 20210729
  3. IBUPROFEN. [Suspect]
     Active Substance: IBUPROFEN
     Indication: PRODUCT USED FOR UNKNOWN INDICATION
     Route: 065
     Dates: start: 20210809

REACTIONS (1)
  - Rash pruritic [Recovered/Resolved]

NARRATIVE: CASE EVENT DATE: 20210809
